FAERS Safety Report 4512799-4 (Version None)
Quarter: 2004Q4

REPORT INFORMATION
  Report Type: 
  Country: None (occurrence: None)
  Receive Date: 20041119
  Receipt Date: 20041119
  Transmission Date: 20050328
  Serious: Yes (Hospitalization, Other)
  Sender: FDA-Public Use
  Company Number: None

PATIENT
  Sex: Female
  Weight: 72.5755 kg

DRUGS (1)
  1. DEXEDRINE [Suspect]
     Indication: SOMNOLENCE
     Dosage: 2 - 3 PO 3-4 X DAY
     Route: 048
     Dates: start: 20020501

REACTIONS (6)
  - ADRENAL INSUFFICIENCY [None]
  - BLOOD SODIUM DECREASED [None]
  - CONVULSION [None]
  - DIARRHOEA [None]
  - STOMACH DISCOMFORT [None]
  - VOMITING [None]
